FAERS Safety Report 13188226 (Version 1)
Quarter: 2017Q1

REPORT INFORMATION
  Report Type: Spontaneous
  Country: US (occurrence: US)
  Receive Date: 20170204
  Receipt Date: 20170204
  Transmission Date: 20170428
  Serious: No
  Sender: FDA-Public Use
  Company Number: None

PATIENT
  Age: 34 Year
  Sex: Female
  Weight: 63.5 kg

DRUGS (1)
  1. MIRENA [Suspect]
     Active Substance: LEVONORGESTREL
     Dates: start: 20160405, end: 20160705

REACTIONS (4)
  - Mood swings [None]
  - Crying [None]
  - Loss of libido [None]
  - Depression [None]

NARRATIVE: CASE EVENT DATE: 20160405
